FAERS Safety Report 7411499-0 (Version None)
Quarter: 2011Q2

REPORT INFORMATION
  Report Type: 
  Country: None (occurrence: None)
  Receive Date: 20110413
  Receipt Date: 20110401
  Transmission Date: 20111010
  Serious: Yes (Other)
  Sender: FDA-Public Use
  Company Number: PHHY2011US16551

PATIENT
  Sex: Female

DRUGS (1)
  1. GILENYA [Suspect]
     Indication: MULTIPLE SCLEROSIS
     Dosage: 0.5 MG, DAILY
     Route: 048
     Dates: start: 20110101, end: 20110301

REACTIONS (4)
  - SKIN DISCOLOURATION [None]
  - RASH GENERALISED [None]
  - ABDOMINAL PAIN UPPER [None]
  - RASH [None]
